FAERS Safety Report 8898434 (Version 1)
Quarter: 2012Q4

REPORT INFORMATION
  Report Type: 
  Country: CH (occurrence: CH)
  Receive Date: 20121109
  Receipt Date: 20121109
  Transmission Date: 20130627
  Serious: Yes (Other)
  Sender: FDA-Public Use
  Company Number: CH-009507513-1211CHE000068

PATIENT
  Age: 40 Year
  Sex: Female

DRUGS (5)
  1. ESMERON [Suspect]
     Dosage: UNK
     Dates: start: 20111109, end: 20111109
  2. EPHEDRINE [Suspect]
     Dosage: UNK
     Dates: start: 20111109, end: 20111109
  3. PROPOFOL [Suspect]
     Dosage: UNK
     Dates: start: 20111109, end: 20111109
  4. SUPRANE [Suspect]
     Dosage: UNK
     Dates: start: 20111109, end: 20111109
  5. METHYLENE BLUE [Suspect]
     Dosage: 100 mg, 1 total
     Route: 019
     Dates: start: 20111109, end: 20111109

REACTIONS (3)
  - Amniotic cavity infection [Recovered/Resolved]
  - Premature delivery [Unknown]
  - Exposure during pregnancy [Recovered/Resolved]
